FAERS Safety Report 22093898 (Version 1)
Quarter: 2023Q1

REPORT INFORMATION
  Report Type: Spontaneous
  Country: US (occurrence: None)
  Receive Date: 20230314
  Receipt Date: 20230314
  Transmission Date: 20230418
  Serious: Yes (Other)
  Sender: FDA-Public Use
  Company Number: None

PATIENT
  Age: 27 Year
  Sex: Male

DRUGS (1)
  1. DOXYCYCLINE [Suspect]
     Active Substance: DOXYCYCLINE
     Indication: Pneumonia
     Route: 065

REACTIONS (10)
  - Drug ineffective [None]
  - Fatigue [None]
  - Night sweats [None]
  - Dyspnoea [None]
  - Weight decreased [None]
  - Nausea [None]
  - Haemoptysis [None]
  - Superinfection bacterial [None]
  - Pneumonitis [None]
  - Pneumonia pneumococcal [None]
